FAERS Safety Report 19344829 (Version 1)
Quarter: 2021Q2

REPORT INFORMATION
  Report Type: Other
  Country: IT (occurrence: IT)
  Receive Date: 20210530
  Receipt Date: 20210530
  Transmission Date: 20210717
  Serious: Yes (Death)
  Sender: FDA-Public Use
  Company Number: IT-CELLTRION INC.-2021IT007015

PATIENT

DRUGS (2)
  1. RITUXIMAB (UNKNOWN) [Suspect]
     Active Substance: RITUXIMAB
     Indication: CHRONIC LYMPHOCYTIC LEUKAEMIA
     Dosage: STARTING AT 375 MG/M^2 AT WEEK 0 AND CONTINUING WITH A DOSE OF 500 MG/M^2 AT WEEKS 2, 4, 6, 8, 12, 1
     Route: 041
  2. IDELALISIB [Suspect]
     Active Substance: IDELALISIB
     Indication: CHRONIC LYMPHOCYTIC LEUKAEMIA
     Dosage: 150 MG EVERY 0.5 DAYS
     Route: 048

REACTIONS (1)
  - Progressive multifocal leukoencephalopathy [Fatal]
